FAERS Safety Report 19982819 (Version 1)
Quarter: 2021Q4

REPORT INFORMATION
  Report Type: Spontaneous
  Country: DE (occurrence: DE)
  Receive Date: 20211022
  Receipt Date: 20211022
  Transmission Date: 20220303
  Serious: Yes (Hospitalization)
  Sender: FDA-Public Use
  Company Number: DE-MERCK HEALTHCARE KGAA-9270071

PATIENT
  Age: 62 Year
  Sex: Female

DRUGS (61)
  1. MOMETASONE FUROATE [Suspect]
     Active Substance: MOMETASONE FUROATE
     Indication: Product used for unknown indication
     Dosage: JUN 2014
     Dates: start: 201406
  2. CIPROFLOXACIN [Suspect]
     Active Substance: CIPROFLOXACIN
     Indication: Product used for unknown indication
     Dosage: THERAPY START DATE: DEC-2017
     Dates: start: 201712
  3. CLIOQUINOL\FLUMETHASONE [Suspect]
     Active Substance: CLIOQUINOL\FLUMETHASONE
     Indication: Product used for unknown indication
     Dosage: THERAPY START DATE:JAN-2014
     Dates: start: 201401
  4. DOXAZOSIN [Suspect]
     Active Substance: DOXAZOSIN MESYLATE
     Indication: Product used for unknown indication
     Dosage: THERAPY START DATE: -MAY-2018
     Dates: start: 201805
  5. RASILEZ [Suspect]
     Active Substance: ALISKIREN
     Indication: Cardiac failure
     Dosage: THERAPY START DATE:-JAN-2012
     Dates: start: 201201
  6. RASILEZ [Suspect]
     Active Substance: ALISKIREN
     Indication: Blood pressure increased
  7. MOMETASONE [Suspect]
     Active Substance: MOMETASONE
     Indication: Product used for unknown indication
     Dosage: THERAPY START DATE:-JUN-2014
     Dates: start: 201406
  8. IBUPROFEN [Suspect]
     Active Substance: IBUPROFEN
     Indication: Product used for unknown indication
     Dosage: THERAPY START DATE:-APR-2014
     Dates: start: 201404, end: 2018
  9. CHLORTHALIDONE [Suspect]
     Active Substance: CHLORTHALIDONE
     Indication: Product used for unknown indication
     Dosage: MAY 2017
  10. DOXAZOSIN MESYLATE [Suspect]
     Active Substance: DOXAZOSIN MESYLATE
     Indication: Product used for unknown indication
     Dosage: THERAPY START DATE: MAY 2017
     Dates: start: 201705
  11. ROXITHROMYCIN [Suspect]
     Active Substance: ROXITHROMYCIN
     Indication: Product used for unknown indication
     Dosage: THERAPY START DATE:-NOV-2011
     Dates: start: 201111
  12. HYDROCORTISONE BUTYRATE [Suspect]
     Active Substance: HYDROCORTISONE BUTYRATE
     Indication: Product used for unknown indication
     Dosage: THERAPY START DATE:-JUN-2016
     Dates: start: 201606
  13. CLINDAMYCIN HYDROCHLORIDE [Suspect]
     Active Substance: CLINDAMYCIN HYDROCHLORIDE
     Indication: Product used for unknown indication
     Dosage: THERAPY START DATE:01-JAN-2014
     Dates: start: 20140101
  14. CLINDAMYCIN HYDROCHLORIDE [Suspect]
     Active Substance: CLINDAMYCIN HYDROCHLORIDE
     Dosage: THERAPY START DATE:-MAR-2015
     Dates: start: 201503
  15. CLINDAMYCIN\CLOTRIMAZOLE [Suspect]
     Active Substance: CLINDAMYCIN\CLOTRIMAZOLE
     Indication: Product used for unknown indication
     Dosage: UNK
  16. FOSFOMYCIN TROMETHAMINE [Suspect]
     Active Substance: FOSFOMYCIN TROMETHAMINE
     Indication: Product used for unknown indication
     Dosage: THERAPY START DATE:-OCT-2012
     Dates: start: 201210
  17. LERCANIDIPINE [Suspect]
     Active Substance: LERCANIDIPINE
     Indication: Product used for unknown indication
     Dosage: THERAPY START DATE:-FEB-2017
     Dates: start: 201702
  18. NYSTATIN [Suspect]
     Active Substance: NYSTATIN
     Indication: Product used for unknown indication
     Dosage: UNK
  19. NYSTATIN [Suspect]
     Active Substance: NYSTATIN
     Dosage: THERAPY START DATE:-MAY-2018
     Dates: start: 201805
  20. HYDROCHLOROTHIAZIDE\VALSARTAN [Suspect]
     Active Substance: HYDROCHLOROTHIAZIDE\VALSARTAN
     Indication: Product used for unknown indication
     Dosage: APR 2012
     Dates: start: 201204
  21. AMPHOTERICIN B [Suspect]
     Active Substance: AMPHOTERICIN B
     Indication: Product used for unknown indication
     Dosage: THERAPY START DATE: -APR-2018
     Dates: start: 201804
  22. FLUMETHASONE PIVALATE [Suspect]
     Active Substance: FLUMETHASONE PIVALATE
     Indication: Product used for unknown indication
     Dosage: THERAPY START DATE:-JAN-2014
     Dates: start: 201401
  23. METAMIZOLE [Suspect]
     Active Substance: METAMIZOLE
     Indication: Product used for unknown indication
     Dosage: THERAPY START DATE:-JUN-2017
     Dates: start: 201706
  24. CIPROFLOXACIN HYDROCHLORIDE [Suspect]
     Active Substance: CIPROFLOXACIN HYDROCHLORIDE
     Indication: Product used for unknown indication
     Dosage: THERAPY START DATE:-NOV-2011
     Dates: start: 201111
  25. SPIRONOLACTONE [Suspect]
     Active Substance: SPIRONOLACTONE
     Indication: Product used for unknown indication
     Dosage: THERAPY START DATE:-FEB-2017
     Dates: start: 201702
  26. HYDROCHLOROTHIAZIDE\VALSARTAN [Suspect]
     Active Substance: HYDROCHLOROTHIAZIDE\VALSARTAN
     Indication: Hypertension
     Dosage: THERAPY START DATE: --2012
     Dates: start: 2012
  27. CLINDAMYCIN HYDROCHLORIDE [Suspect]
     Active Substance: CLINDAMYCIN HYDROCHLORIDE
     Indication: Product used for unknown indication
     Dosage: THERAPY START DATE: -AUG-2013
     Dates: start: 201308
  28. IBUPROFEN [Suspect]
     Active Substance: IBUPROFEN
     Indication: Product used for unknown indication
     Dosage: UNK
  29. PANTOPRAZOLE [Suspect]
     Active Substance: PANTOPRAZOLE
     Indication: Product used for unknown indication
     Dosage: THERAPY START DATE: -MAY-2017
     Dates: start: 201705
  30. CLINDAGEL [Suspect]
     Active Substance: CLINDAMYCIN PHOSPHATE
     Indication: Product used for unknown indication
     Dosage: UNK
  31. DOXAZOSIN MESYLATE [Suspect]
     Active Substance: DOXAZOSIN MESYLATE
     Indication: Product used for unknown indication
     Dosage: THERAPY START DATE:-FEB-2017
     Dates: start: 201702
  32. VALSARTAN [Suspect]
     Active Substance: VALSARTAN
     Indication: Hypertension
     Dosage: START DATE: JAN 2012
     Dates: start: 201201, end: 2012
  33. DOXYCYCLINE [Suspect]
     Active Substance: DOXYCYCLINE
     Indication: Product used for unknown indication
     Dosage: THERAPY START DATE: -JUN-2016
     Dates: start: 201606
  34. METAMIZOLE SODIUM [Suspect]
     Active Substance: METAMIZOLE SODIUM
     Indication: Product used for unknown indication
     Dosage: JUN 2017
     Dates: start: 201706
  35. TRIMETHOPRIM [Suspect]
     Active Substance: TRIMETHOPRIM
     Indication: Product used for unknown indication
     Dosage: UNK
  36. PREDNISOLONE [Suspect]
     Active Substance: PREDNISOLONE
     Indication: Product used for unknown indication
     Dosage: THERAPY START DATE: -MAY-2015
     Dates: start: 201505
  37. PREDNISOLONE [Suspect]
     Active Substance: PREDNISOLONE
     Indication: Product used for unknown indication
     Dosage: UNK
  38. NEBIVOLOL [Suspect]
     Active Substance: NEBIVOLOL
     Indication: Product used for unknown indication
     Dosage: THERAPY START DATE:-FEB-2014
     Dates: start: 201402
  39. IBUPROFEN SODIUM [Suspect]
     Active Substance: IBUPROFEN SODIUM
     Indication: Product used for unknown indication
     Dosage: THERAPY START DATE: 20-JUL-2000
     Dates: start: 20000720
  40. EUTHYROX [Suspect]
     Active Substance: LEVOTHYROXINE SODIUM
     Indication: Product used for unknown indication
     Dosage: THERAPY START DATE 20-APR-2000
     Dates: start: 20000420
  41. CEFPODOXIME [Suspect]
     Active Substance: CEFPODOXIME
     Indication: Product used for unknown indication
     Dosage: THERAPY START DATE:-SEP-2014
     Dates: start: 201409
  42. CEFPODOXIME [Suspect]
     Active Substance: CEFPODOXIME
     Dosage: THERAPY START DATE: -NOV-2013
     Dates: start: 201311
  43. EFEROX [Suspect]
     Active Substance: LEVOTHYROXINE SODIUM
     Indication: Product used for unknown indication
     Dosage: THERAPY START DATE:-DEC 2012
     Dates: start: 201212
  44. ROXITHROMYCIN [Suspect]
     Active Substance: ROXITHROMYCIN
     Indication: Product used for unknown indication
     Dosage: UNK
  45. FLUCONAZOLE [Suspect]
     Active Substance: FLUCONAZOLE
     Indication: Product used for unknown indication
     Dosage: THERAPY START DATE: --2018
     Dates: start: 2018
  46. CODEINE PHOSPHATE [Suspect]
     Active Substance: CODEINE PHOSPHATE
     Indication: Product used for unknown indication
     Dosage: UNK
  47. SULFAMETHOXAZOLE [Suspect]
     Active Substance: SULFAMETHOXAZOLE
     Indication: Product used for unknown indication
     Dosage: THERAPY START DATE:-OCT-2014
     Dates: start: 201410
  48. AMPICILLIN SODIUM [Suspect]
     Active Substance: AMPICILLIN SODIUM
     Indication: Product used for unknown indication
     Dosage: UNK
  49. MINOXIDIL [Suspect]
     Active Substance: MINOXIDIL
     Indication: Product used for unknown indication
     Dosage: UNK
  50. CEFPODOXIME PROXETIL [Suspect]
     Active Substance: CEFPODOXIME PROXETIL
     Indication: Product used for unknown indication
     Dosage: THERAPY START DATE:-MAY-2016
     Dates: start: 201605
  51. AZITHROMYCIN [Suspect]
     Active Substance: AZITHROMYCIN
     Indication: Product used for unknown indication
     Dosage: UNK
  52. LEVOTHYROXINE SODIUM [Suspect]
     Active Substance: LEVOTHYROXINE SODIUM
     Indication: Product used for unknown indication
     Dosage: THERAPY START DATE:-APR-2012
     Dates: start: 201204
  53. CIPROFLOXACIN HYDROCHLORIDE [Suspect]
     Active Substance: CIPROFLOXACIN HYDROCHLORIDE
     Indication: Product used for unknown indication
     Dosage: UNK
  54. LEVOTHYROXINE SODIUM [Suspect]
     Active Substance: LEVOTHYROXINE SODIUM
     Indication: Product used for unknown indication
     Dosage: UNK
  55. LEVOTHYROXINE SODIUM [Suspect]
     Active Substance: LEVOTHYROXINE SODIUM
     Indication: Product used for unknown indication
     Dosage: THERAPY START DATE:-MAY-2013
     Dates: start: 201305
  56. VALSARTAN [Suspect]
     Active Substance: VALSARTAN
     Indication: Hypertension
     Dosage: UNK
     Dates: start: 20000120, end: 20000220
  57. VALSARTAN [Suspect]
     Active Substance: VALSARTAN
     Dosage: THERAPY START DATE: 20-APR-2000
     Dates: start: 20000420
  58. VALSARTAN [Suspect]
     Active Substance: VALSARTAN
     Dosage: UNK
     Dates: start: 20000220
  59. VALSARTAN [Suspect]
     Active Substance: VALSARTAN
     Dosage: APRIL 2012
  60. SULFAMETHOXAZOLE\TRIMETHOPRIM [Suspect]
     Active Substance: SULFAMETHOXAZOLE\TRIMETHOPRIM
     Indication: Product used for unknown indication
     Dosage: UNK
  61. TRIMIPRAMINE [Suspect]
     Active Substance: TRIMIPRAMINE

REACTIONS (1)
  - Bladder transitional cell carcinoma [Recovered/Resolved]

NARRATIVE: CASE EVENT DATE: 20000320
